FAERS Safety Report 7151992-1 (Version None)
Quarter: 2010Q4

REPORT INFORMATION
  Report Type: 
  Country: None (occurrence: None)
  Receive Date: 20101211
  Receipt Date: 20101208
  Transmission Date: 20110411
  Serious: Yes (Life-Threatening, Other)
  Sender: FDA-Public Use
  Company Number: BR-PFIZER INC-2010160468

PATIENT
  Sex: Female

DRUGS (1)
  1. ADVIL [Suspect]
     Route: 048

REACTIONS (1)
  - VOMITING [None]
